FAERS Safety Report 12156732 (Version 4)
Quarter: 2016Q3

REPORT INFORMATION
  Report Type: Report from Study
  Country: TR (occurrence: TR)
  Receive Date: 20160307
  Receipt Date: 20160908
  Transmission Date: 20161109
  Serious: Yes (Other)
  Sender: FDA-Public Use
  Company Number: TR-ABBVIE-16P-161-1576076-00

PATIENT
  Age: 79 Year
  Sex: Female
  Weight: 53 kg

DRUGS (4)
  1. DUODOPA [Suspect]
     Active Substance: CARBIDOPA\LEVODOPA
     Indication: PARKINSON^S DISEASE
     Dosage: MD: 4.8, CD: 1.2 ML, ED: 1.2 ML
     Route: 050
  2. CAPRIL [Concomitant]
     Indication: HYPERTENSION
     Dosage: AS NEEDED
     Route: 060
     Dates: start: 1998, end: 20160530
  3. DUODOPA [Suspect]
     Active Substance: CARBIDOPA\LEVODOPA
     Dosage: MD: 4.8 ML, CD: 1.5 ML, ED: 1.2 ML
     Route: 050
     Dates: start: 20141216
  4. LUSTRAL [Concomitant]
     Active Substance: SERTRALINE HYDROCHLORIDE
     Indication: DEPRESSION
     Route: 050
     Dates: end: 201603

REACTIONS (2)
  - Cerebral vascular occlusion [Unknown]
  - Headache [Recovered/Resolved]

NARRATIVE: CASE EVENT DATE: 20160217
